FAERS Safety Report 7321069-0 (Version None)
Quarter: 2011Q1

REPORT INFORMATION
  Report Type: 
  Country: None (occurrence: None)
  Receive Date: 20110223
  Receipt Date: 20110223
  Transmission Date: 20110831
  Serious: Yes (Hospitalization, Other)
  Sender: FDA-Public Use
  Company Number: None

PATIENT
  Sex: Female
  Weight: 68.0396 kg

DRUGS (2)
  1. SEROQUEL [Suspect]
     Indication: BIPOLAR DISORDER
     Dosage: 100 AM PO
     Route: 048
     Dates: start: 20101028, end: 20110130
  2. SEROQUEL [Suspect]
     Dosage: 200 PM PO
     Route: 048
     Dates: start: 20101028, end: 20110130

REACTIONS (1)
  - URINE ANALYSIS ABNORMAL [None]
